FAERS Safety Report 12834823 (Version 2)
Quarter: 2016Q4

REPORT INFORMATION
  Report Type: Spontaneous
  Country: PR (occurrence: PR)
  Receive Date: 20161010
  Receipt Date: 20161012
  Transmission Date: 20170207
  Serious: No
  Sender: FDA-Public Use
  Company Number: PR-PFIZER INC-2016469543

PATIENT
  Age: 75 Year
  Sex: Female
  Weight: 69.85 kg

DRUGS (1)
  1. IBRANCE [Suspect]
     Active Substance: PALBOCICLIB
     Indication: BREAST CANCER FEMALE
     Dosage: 125 MG CAPSULE DAILY BY MOUTH
     Route: 048
     Dates: start: 20160609

REACTIONS (1)
  - Neoplasm progression [Unknown]
